FAERS Safety Report 12419643 (Version 1)
Quarter: 2016Q2

REPORT INFORMATION
  Report Type: Spontaneous
  Country: JP (occurrence: JP)
  Receive Date: 20160531
  Receipt Date: 20160531
  Transmission Date: 20160815
  Serious: Yes (Hospitalization)
  Sender: FDA-Public Use
  Company Number: JP-SA-2016SA097566

PATIENT

DRUGS (3)
  1. MABCAMPATH [Suspect]
     Active Substance: ALEMTUZUMAB
     Route: 042
     Dates: start: 20160514, end: 20160515
  2. MABCAMPATH [Suspect]
     Active Substance: ALEMTUZUMAB
     Route: 042
     Dates: start: 20160518
  3. MABCAMPATH [Suspect]
     Active Substance: ALEMTUZUMAB
     Route: 042
     Dates: start: 20160516

REACTIONS (2)
  - Neutrophil count decreased [Unknown]
  - Rash [Recovered/Resolved]

NARRATIVE: CASE EVENT DATE: 20160516
